FAERS Safety Report 9245221 (Version 3)
Quarter: 2013Q2

REPORT INFORMATION
  Report Type: Spontaneous
  Country: US (occurrence: US)
  Receive Date: 20130422
  Receipt Date: 20130506
  Transmission Date: 20140414
  Serious: No
  Sender: FDA-Public Use
  Company Number: US-009507513-1304USA006739

PATIENT
  Age: 63 Year
  Sex: Male
  Weight: 77.98 kg

DRUGS (6)
  1. CLARITIN [Suspect]
     Indication: EYE PRURITUS
     Dosage: 40 MG, QD
     Route: 048
     Dates: start: 20130322, end: 201303
  2. CLARITIN [Suspect]
     Indication: SINUS HEADACHE
  3. CLARITIN [Suspect]
     Indication: OROPHARYNGEAL PAIN
  4. CLARITIN [Suspect]
     Indication: MEDICAL OBSERVATION
  5. FLUTICASONE PROPIONATE [Concomitant]
     Indication: HYPERSENSITIVITY
     Dosage: UNK, UNKNOWN
  6. MUCINEX [Concomitant]
     Indication: HYPERSENSITIVITY
     Dosage: UNK, UNKNOWN

REACTIONS (3)
  - Somnolence [Recovered/Resolved]
  - Drug ineffective [Unknown]
  - Overdose [Unknown]
